FAERS Safety Report 9178723 (Version 1)
Quarter: 2012Q4

REPORT INFORMATION
  Report Type: 
  Country: US (occurrence: US)
  Receive Date: 20121029
  Receipt Date: 20121029
  Transmission Date: 20130627
  Serious: No
  Sender: FDA-Public Use
  Company Number: US-MYLANLABS-2011S1022552

PATIENT
  Sex: Female

DRUGS (2)
  1. DIAZEPAM TABLETS [Suspect]
     Indication: ANXIETY
     Dosage: x2 doses
     Route: 048
     Dates: start: 20111028, end: 20111029
  2. PROTONIX [Concomitant]
     Indication: GASTROOESOPHAGEAL REFLUX DISEASE

REACTIONS (1)
  - Dyspepsia [Recovered/Resolved]
